FAERS Safety Report 19158912 (Version 1)
Quarter: 2021Q2

REPORT INFORMATION
  Report Type: Spontaneous
  Country: CN (occurrence: CN)
  Receive Date: 20210420
  Receipt Date: 20210420
  Transmission Date: 20210717
  Serious: Yes (Hospitalization, Other)
  Sender: FDA-Public Use
  Company Number: CN-009507513-2104CHN003828

PATIENT
  Age: 69 Year
  Sex: Male
  Weight: 68 kg

DRUGS (3)
  1. AI YUE (ALBUMIN HUMAN (+) PACLITAXEL) [Concomitant]
     Indication: LUNG NEOPLASM MALIGNANT
     Dosage: 400 MILLIGRAM, ONCE
     Route: 041
     Dates: start: 20210126, end: 20210126
  2. KEYTRUDA [Suspect]
     Active Substance: PEMBROLIZUMAB
     Indication: LUNG NEOPLASM MALIGNANT
     Dosage: 200 MILLIGRAM, ONCE
     Route: 041
     Dates: start: 20210126, end: 20210126
  3. CARBOPLATIN. [Concomitant]
     Active Substance: CARBOPLATIN
     Indication: LUNG NEOPLASM MALIGNANT
     Dosage: 350 MILLIGRAM, ONCE
     Route: 041
     Dates: start: 20210126, end: 20210126

REACTIONS (2)
  - Liver injury [Recovering/Resolving]
  - Renal injury [Recovering/Resolving]

NARRATIVE: CASE EVENT DATE: 20210218
